FAERS Safety Report 5018529-4 (Version None)
Quarter: 2006Q2

REPORT INFORMATION
  Report Type: 
  Country: None (occurrence: None)
  Receive Date: 20060414
  Receipt Date: 20051222
  Transmission Date: 20061013
  Serious: No
  Sender: FDA-Public Use
  Company Number: 2005SP004500

PATIENT
  Age: 75 Year
  Sex: Male
  Weight: 87.3174 kg

DRUGS (8)
  1. LUNESTA [Suspect]
     Indication: INSOMNIA
     Dosage: SEE IMAGE
     Route: 048
     Dates: start: 20051211, end: 20051201
  2. LUNESTA [Suspect]
     Indication: INSOMNIA
     Dosage: SEE IMAGE
     Route: 048
     Dates: start: 20051204, end: 20051210
  3. LOPRESSOR [Concomitant]
  4. AMLODIPINE [Concomitant]
  5. ZETIA [Concomitant]
  6. HYTRIN [Concomitant]
  7. AVODART [Concomitant]
  8. OMEPRAZOLE [Concomitant]

REACTIONS (5)
  - DRUG INEFFECTIVE [None]
  - HEADACHE [None]
  - INSOMNIA [None]
  - MOTION SICKNESS [None]
  - VISION BLURRED [None]
